FAERS Safety Report 11707056 (Version 1)
Quarter: 2015Q4

REPORT INFORMATION
  Report Type: Spontaneous
  Country: US (occurrence: US)
  Receive Date: 20151104
  Receipt Date: 20151104
  Transmission Date: 20160304
  Serious: No
  Sender: FDA-Public Use
  Company Number: US-ELI_LILLY_AND_COMPANY-US201102002948

PATIENT
  Sex: Female

DRUGS (1)
  1. FORTEO [Suspect]
     Active Substance: TERIPARATIDE
     Dosage: 20 UG, UNK
     Route: 065

REACTIONS (10)
  - Pruritus [Unknown]
  - Sensory disturbance [Unknown]
  - Headache [Unknown]
  - Nausea [Not Recovered/Not Resolved]
  - Contusion [Unknown]
  - Ear pain [Unknown]
  - Heart rate increased [Not Recovered/Not Resolved]
  - Dizziness [Not Recovered/Not Resolved]
  - Muscular weakness [Unknown]
  - Pain [Unknown]
